FAERS Safety Report 7774345-1 (Version None)
Quarter: 2011Q3

REPORT INFORMATION
  Report Type: 
  Country: None (occurrence: None)
  Receive Date: 20110923
  Receipt Date: 20110912
  Transmission Date: 20111222
  Serious: Yes (Death, Hospitalization, Other)
  Sender: FDA-Public Use
  Company Number: PHHY2011EC81076

PATIENT
  Sex: Male

DRUGS (1)
  1. DIOVAN HCT [Suspect]
     Indication: HYPERTENSION
     Dosage: 1 DF DAILY, 160 MG OF VALS AND 12.5 MG OF HYD
     Route: 048
     Dates: start: 20090921, end: 20110910

REACTIONS (5)
  - RENAL FAILURE CHRONIC [None]
  - URINARY TRACT INFECTION [None]
  - GENERAL PHYSICAL HEALTH DETERIORATION [None]
  - DIABETIC COMPLICATION [None]
  - PARKINSON'S DISEASE [None]
